FAERS Safety Report 19690847 (Version 2)
Quarter: 2021Q3

REPORT INFORMATION
  Report Type: Spontaneous
  Country: US (occurrence: US)
  Receive Date: 20210812
  Receipt Date: 20210921
  Transmission Date: 20211014
  Serious: No
  Sender: FDA-Public Use
  Company Number: US-QED THERAPEUTICS-2114930

PATIENT
  Age: 54 Year
  Sex: Female

DRUGS (2)
  1. PURE BAKING SODA [Concomitant]
     Active Substance: SODIUM BICARBONATE
     Route: 065
  2. TRUSELTIQ [Suspect]
     Active Substance: INFIGRATINIB
     Indication: CHOLANGIOCARCINOMA
     Route: 048
     Dates: start: 20210706

REACTIONS (10)
  - Blister [Recovering/Resolving]
  - Skin exfoliation [Unknown]
  - Arthralgia [Recovered/Resolved]
  - Neoplasm progression [Unknown]
  - Stomatitis [Unknown]
  - Nausea [Unknown]
  - Alopecia [Unknown]
  - Growth of eyelashes [Unknown]
  - Vomiting [Unknown]
  - Fatigue [Unknown]
